FAERS Safety Report 9869420 (Version 2)
Quarter: 2014Q1

REPORT INFORMATION
  Report Type: Spontaneous
  Country: US (occurrence: US)
  Receive Date: 20140205
  Receipt Date: 20140205
  Transmission Date: 20141002
  Serious: Yes (Disabling)
  Sender: FDA-Public Use
  Company Number: US-ASTRAZENECA-2011SE57375

PATIENT
  Age: 51 Year
  Sex: Female
  Weight: 106.1 kg

DRUGS (13)
  1. NEXIUM [Suspect]
     Indication: GASTROOESOPHAGEAL REFLUX DISEASE
     Route: 048
     Dates: start: 2006
  2. NEXIUM [Suspect]
     Indication: GASTROOESOPHAGEAL REFLUX DISEASE
     Route: 048
     Dates: start: 20140114
  3. NEXIUM [Suspect]
     Indication: GASTROOESOPHAGEAL REFLUX DISEASE
     Route: 048
  4. NEXIUM [Suspect]
     Indication: GASTROOESOPHAGEAL REFLUX DISEASE
     Route: 048
  5. LEVOTHYROXINE [Concomitant]
     Indication: BLOOD CHOLESTEROL ABNORMAL
     Route: 048
     Dates: start: 201306
  6. MAXZIDE [Concomitant]
     Indication: HYPERTENSION
     Dosage: 5/25 MG DAILY
     Route: 048
     Dates: start: 2010
  7. NORVASC [Concomitant]
     Indication: HYPERTENSION
     Route: 048
  8. PRIOBENECIDE [Concomitant]
     Indication: GOUT
     Route: 048
     Dates: start: 201303
  9. VALIUM [Concomitant]
     Indication: NERVOUSNESS
     Route: 048
     Dates: start: 2007
  10. VICODIN [Concomitant]
     Indication: PAIN
     Route: 048
     Dates: start: 2001
  11. ZOCOR [Concomitant]
     Indication: THYROID DISORDER
     Route: 048
     Dates: start: 201302
  12. TRAMADOL [Concomitant]
     Indication: MUSCLE SPASMS
     Route: 048
     Dates: start: 2013
  13. ANTIBIOTICS [Concomitant]
     Dates: start: 201311, end: 201312

REACTIONS (16)
  - Disability [Not Recovered/Not Resolved]
  - Gastritis [Not Recovered/Not Resolved]
  - Dyspepsia [Not Recovered/Not Resolved]
  - Pain [Not Recovered/Not Resolved]
  - Cystitis [Recovered/Resolved]
  - Urinary tract disorder [Recovering/Resolving]
  - Blood urine present [Recovered/Resolved]
  - Road traffic accident [Recovered/Resolved with Sequelae]
  - Urinary tract infection [Unknown]
  - Muscle spasms [Unknown]
  - Chest pain [Unknown]
  - Gastrooesophageal reflux disease [Unknown]
  - Insomnia [Not Recovered/Not Resolved]
  - Abdominal pain upper [Not Recovered/Not Resolved]
  - Intentional drug misuse [Not Recovered/Not Resolved]
  - Off label use [Unknown]
